FAERS Safety Report 15766915 (Version 1)
Quarter: 2018Q4

REPORT INFORMATION
  Report Type: Spontaneous
  Country: JP (occurrence: JP)
  Receive Date: 20181227
  Receipt Date: 20181227
  Transmission Date: 20190205
  Serious: Yes (Hospitalization)
  Sender: FDA-Public Use
  Company Number: JP-MYLANLABS-2018M1096791

PATIENT
  Age: 4 Year
  Sex: Male

DRUGS (1)
  1. MYCOPHENOLATE MOFETIL. [Suspect]
     Active Substance: MYCOPHENOLATE MOFETIL
     Indication: CHRONIC GRAFT VERSUS HOST DISEASE IN SKIN
     Dosage: 6 UNK
     Route: 065

REACTIONS (5)
  - Encephalopathy [Recovered/Resolved]
  - Pneumococcal infection [Recovered/Resolved]
  - Streptococcal bacteraemia [Recovered/Resolved]
  - Disseminated intravascular coagulation [Recovered/Resolved]
  - Pulmonary alveolar haemorrhage [Recovered/Resolved]
